FAERS Safety Report 7756973-2 (Version None)
Quarter: 2011Q3

REPORT INFORMATION
  Report Type: 
  Country: None (occurrence: None)
  Receive Date: 20110916
  Receipt Date: 20110916
  Transmission Date: 20111222
  Serious: Yes (Life-Threatening)
  Sender: FDA-Public Use
  Company Number: None

PATIENT
  Age: 45 Year
  Sex: Female
  Weight: 88.45 kg

DRUGS (1)
  1. LO LOESTRIN FE [Suspect]

REACTIONS (1)
  - THROMBOSIS [None]
